FAERS Safety Report 18896178 (Version 1)
Quarter: 2021Q1

REPORT INFORMATION
  Report Type: Spontaneous
  Country: US (occurrence: US)
  Receive Date: 20210216
  Receipt Date: 20210216
  Transmission Date: 20210420
  Serious: No
  Sender: FDA-Public Use
  Company Number: US-BEH-2021128399

PATIENT
  Age: 61 Year
  Sex: Female

DRUGS (1)
  1. HIZENTRA [Suspect]
     Active Substance: HUMAN IMMUNOGLOBULIN G
     Indication: HEREDITARY ANGIOEDEMA
     Dosage: 11 GRAM, QW
     Route: 058
     Dates: start: 202005

REACTIONS (3)
  - Abdominal distension [Recovered/Resolved]
  - Off label use [Unknown]
  - No adverse event [Unknown]

NARRATIVE: CASE EVENT DATE: 20210201
